FAERS Safety Report 8552769-2 (Version None)
Quarter: 2012Q3

REPORT INFORMATION
  Report Type: 
  Country: None (occurrence: None)
  Receive Date: 20120731
  Receipt Date: 20120725
  Transmission Date: 20120928
  Serious: Yes (Other)
  Sender: FDA-Public Use
  Company Number: PHEH2012US014631

PATIENT
  Sex: Female

DRUGS (8)
  1. SANDOSTATIN [Suspect]
     Indication: CARCINOID TUMOUR
     Dosage: 380 UG, QID
     Route: 058
  2. LIOTHYRONINE SODIUM [Concomitant]
  3. PROPRANOLOL HYDROCHLORIDE [Concomitant]
  4. HYDROCHLOROTHIAZIDE [Concomitant]
  5. LEVOTHYROXINE SODIUM [Concomitant]
  6. ESTROGENS CONJUGATED [Concomitant]
  7. OXYCODONE HCL [Concomitant]
  8. PRESERVISION /FRA/ [Concomitant]

REACTIONS (10)
  - OEDEMA MOUTH [None]
  - DIZZINESS [None]
  - HEADACHE [None]
  - MACULAR DEGENERATION [None]
  - VISUAL ACUITY REDUCED [None]
  - PAIN [None]
  - MYALGIA [None]
  - ORAL TORUS [None]
  - DECREASED APPETITE [None]
  - ASTHENIA [None]
